FAERS Safety Report 7290745-0 (Version None)
Quarter: 2011Q1

REPORT INFORMATION
  Report Type: 
  Country: None (occurrence: None)
  Receive Date: 20110201
  Receipt Date: 20110124
  Transmission Date: 20110831
  Serious: Yes (Hospitalization, Other)
  Sender: FDA-Public Use
  Company Number: 2010AC000322

PATIENT
  Sex: Male

DRUGS (28)
  1. ACCUPRIL [Concomitant]
  2. FLONASE [Concomitant]
  3. AVELOX [Concomitant]
  4. DIGOXIN [Suspect]
     Dosage: PO
     Route: 048
     Dates: start: 20060301, end: 20080601
  5. LOPRESSOR [Concomitant]
  6. ADVAIR DISKUS 100/50 [Concomitant]
  7. SODIUM POLYSTYRENE [Concomitant]
  8. METROPOLOL [Concomitant]
  9. NEXIUM [Concomitant]
  10. CEFTIN [Concomitant]
  11. PROVENTIL [Concomitant]
  12. GLUCOTROL [Concomitant]
  13. KAYEXALATE [Concomitant]
  14. DILTIAZEM [Concomitant]
  15. SPIRIVA [Concomitant]
  16. INSULIN [Concomitant]
  17. ZITHROMAX [Concomitant]
  18. NITROGLYCERIN [Concomitant]
  19. ALBUTEROL [Concomitant]
  20. ASPIRIN [Concomitant]
  21. PLAVIX [Concomitant]
  22. AVAPRO [Concomitant]
  23. DIGOXIN [Suspect]
     Dosage: 0.25 MG; QD; PO
     Route: 048
     Dates: start: 20070101
  24. GLIPIZIDE [Concomitant]
  25. ZOCOR [Concomitant]
  26. CARDIZEM [Concomitant]
  27. PREDNISONE [Concomitant]
  28. DUONEB [Concomitant]

REACTIONS (24)
  - OEDEMA PERIPHERAL [None]
  - ELECTROCARDIOGRAM ABNORMAL [None]
  - CARDIOACTIVE DRUG LEVEL BELOW THERAPEUTIC [None]
  - NAIL AVULSION [None]
  - DIABETES MELLITUS INADEQUATE CONTROL [None]
  - WEIGHT INCREASED [None]
  - TRICUSPID VALVE INCOMPETENCE [None]
  - PAIN [None]
  - LOBAR PNEUMONIA [None]
  - BLOOD POTASSIUM INCREASED [None]
  - PLEURAL EFFUSION [None]
  - PNEUMONIA BACTERIAL [None]
  - CARDIAC DISORDER [None]
  - MULTIPLE INJURIES [None]
  - ANXIETY [None]
  - ECONOMIC PROBLEM [None]
  - DIZZINESS [None]
  - RENAL FAILURE [None]
  - CHEST PAIN [None]
  - CORONARY ARTERIAL STENT INSERTION [None]
  - CONDITION AGGRAVATED [None]
  - ATRIAL FIBRILLATION [None]
  - CHRONIC OBSTRUCTIVE PULMONARY DISEASE [None]
  - LIMB INJURY [None]
